FAERS Safety Report 6530160-8 (Version None)
Quarter: 2010Q1

REPORT INFORMATION
  Report Type: 
  Country: None (occurrence: None)
  Receive Date: 20100107
  Receipt Date: 20091229
  Transmission Date: 20100710
  Serious: Yes (Hospitalization)
  Sender: FDA-Public Use
  Company Number: DE-AMGEN-US383193

PATIENT
  Age: 70 Year
  Sex: Female

DRUGS (3)
  1. ENBREL [Suspect]
     Indication: RHEUMATOID ARTHRITIS
     Route: 058
     Dates: start: 20090220, end: 20091101
  2. ENBREL [Suspect]
     Route: 058
     Dates: start: 20090101
  3. ALENDRONIC ACID [Concomitant]
     Indication: OSTEOPOROSIS
     Dosage: ONE DOSE FORM ONE TIME PER WEEK

REACTIONS (1)
  - KNEE ARTHROPLASTY [None]
